FAERS Safety Report 7801359-5 (Version None)
Quarter: 2011Q4

REPORT INFORMATION
  Report Type: 
  Country: None (occurrence: None)
  Receive Date: 20111006
  Receipt Date: 20111006
  Transmission Date: 20120403
  Serious: Yes (Hospitalization)
  Sender: FDA-Public Use
  Company Number: None

PATIENT
  Age: 81 Year
  Sex: Female
  Weight: 95.1 kg

DRUGS (15)
  1. COUMADIN [Suspect]
     Dosage: 7.5MG S TU TH PO  CHRONIC
     Route: 048
  2. VIT B12 [Concomitant]
  3. TRAVATAN [Concomitant]
  4. LISINOPRIL [Concomitant]
  5. LOVAZA [Concomitant]
  6. ASPIRIN [Suspect]
     Dosage: 81MG
  7. SIMVASTATIN [Concomitant]
  8. ARIMIDEX [Concomitant]
  9. FORTICAL [Concomitant]
  10. COUMADIN [Suspect]
     Indication: ATRIAL FIBRILLATION
     Dosage: 5MG Q MWFSAT PO CHRONIC
     Route: 048
  11. FUROSEMIDE [Concomitant]
  12. OMEPRAZOLE [Concomitant]
  13. BRIMONIDINE TARTRATE [Concomitant]
  14. VIT D [Concomitant]
  15. METAMUCIL-2 [Concomitant]

REACTIONS (1)
  - EPISTAXIS [None]
